FAERS Safety Report 6074440-1 (Version None)
Quarter: 2009Q1

REPORT INFORMATION
  Report Type: 
  Country: None (occurrence: None)
  Receive Date: 20090206
  Receipt Date: 20090129
  Transmission Date: 20090719
  Serious: Yes (Life-Threatening, Hospitalization)
  Sender: FDA-Public Use
  Company Number: WAES 0902USA00335

PATIENT
  Age: 80 Year
  Sex: Female

DRUGS (5)
  1. FOSAMAX [Suspect]
     Indication: OSTEOPOROSIS
     Dosage: 5 MG DAILY
     Route: 048
     Dates: start: 20040428, end: 20090128
  2. AMLODIN [Concomitant]
  3. OLMETEC [Concomitant]
  4. ONEALFA [Concomitant]
  5. DISOPYRAMIDE [Concomitant]

REACTIONS (1)
  - HAEMATEMESIS [None]
